FAERS Safety Report 11361979 (Version 1)
Quarter: 2015Q3

REPORT INFORMATION
  Report Type: Spontaneous
  Country: US (occurrence: US)
  Receive Date: 20150810
  Receipt Date: 20150810
  Transmission Date: 20151125
  Serious: Yes (Other)
  Sender: FDA-Public Use
  Company Number: US-TEVA-584232USA

PATIENT

DRUGS (2)
  1. COPAXONE [Suspect]
     Active Substance: GLATIRAMER ACETATE
     Indication: MULTIPLE SCLEROSIS
  2. MANNITOL. [Concomitant]
     Active Substance: MANNITOL
     Route: 065

REACTIONS (2)
  - Injection site reaction [Unknown]
  - Drug hypersensitivity [Unknown]
